FAERS Safety Report 10173938 (Version 1)
Quarter: 2014Q2

REPORT INFORMATION
  Report Type: Spontaneous
  Country: CN (occurrence: CN)
  Receive Date: 20140515
  Receipt Date: 20140515
  Transmission Date: 20141212
  Serious: Yes (Life-Threatening, Hospitalization)
  Sender: FDA-Public Use
  Company Number: CN-ASTRAZENECA-2014SE32149

PATIENT
  Age: 27152 Day
  Sex: Male
  Weight: 60 kg

DRUGS (1)
  1. ROSUVASTATIN CALCIUM [Suspect]
     Indication: CEREBRAL INFARCTION
     Route: 048
     Dates: start: 20121226, end: 20130108

REACTIONS (4)
  - Lung infection [Unknown]
  - Respiratory failure [Unknown]
  - Rhabdomyolysis [Unknown]
  - Hepatic function abnormal [Unknown]
